FAERS Safety Report 23455795 (Version 1)
Quarter: 2024Q1

REPORT INFORMATION
  Report Type: Other
  Country: US (occurrence: None)
  Receive Date: 20240130
  Receipt Date: 20240130
  Transmission Date: 20240410
  Serious: Yes (Other)
  Sender: FDA-Public Use
  Company Number: US-ROCHE-3495366

PATIENT
  Age: 40 Year
  Sex: Female
  Weight: 79.379 kg

DRUGS (2)
  1. OCREVUS [Suspect]
     Active Substance: OCRELIZUMAB
     Indication: Relapsing multiple sclerosis
     Dosage: 1ST 2 INFUSION 2 WEEKS APART
     Route: 065
  2. PROVIGIL [Concomitant]
     Active Substance: MODAFINIL

REACTIONS (3)
  - JC polyomavirus test positive [Unknown]
  - Abortion spontaneous [Unknown]
  - Maternal exposure timing unspecified [Unknown]
